FAERS Safety Report 5373259-4 (Version None)
Quarter: 2007Q2

REPORT INFORMATION
  Report Type: 
  Country: None (occurrence: None)
  Receive Date: 20070628
  Receipt Date: 20070618
  Transmission Date: 20071010
  Serious: Yes (Other)
  Sender: FDA-Public Use
  Company Number: NO-JNJFOC-20070604536

PATIENT
  Sex: Female

DRUGS (1)
  1. REMICADE [Suspect]
     Indication: RHEUMATOID ARTHRITIS
     Route: 042

REACTIONS (1)
  - BASAL CELL CARCINOMA [None]
